FAERS Safety Report 7262635-0 (Version None)
Quarter: 2011Q1

REPORT INFORMATION
  Report Type: 
  Country: None (occurrence: None)
  Receive Date: 20110130
  Receipt Date: 20100910
  Transmission Date: 20110831
  Serious: No
  Sender: FDA-Public Use
  Company Number: US-ABBOTT-10P-163-0670587-00

PATIENT
  Sex: Female

DRUGS (10)
  1. LIPITOR [Concomitant]
     Indication: BLOOD CHOLESTEROL
  2. FOSAMAX [Concomitant]
     Indication: BONE DISORDER
  3. D3 [Concomitant]
     Indication: PRODUCT USED FOR UNKNOWN INDICATION
     Dosage: DAILY
  4. HUMIRA [Suspect]
  5. CENTRUM [Concomitant]
     Indication: VITAMIN SUPPLEMENTATION
     Dosage: DAILY
  6. ESTER C [Concomitant]
     Indication: PRODUCT USED FOR UNKNOWN INDICATION
     Dosage: DAILY
  7. VITAMIN B-12 [Concomitant]
     Indication: PRODUCT USED FOR UNKNOWN INDICATION
     Dosage: DAILY
  8. COENZYME Q10 [Concomitant]
     Dosage: DAILY
  9. HUMIRA [Suspect]
     Indication: PSORIASIS
     Dosage: 80 MG DAY 1
     Route: 058
     Dates: start: 20100813
  10. LISINOPRIL [Concomitant]
     Indication: BLOOD PRESSURE

REACTIONS (3)
  - INJECTION SITE PRURITUS [None]
  - INJECTION SITE OEDEMA [None]
  - INJECTION SITE SWELLING [None]
